FAERS Safety Report 8967669 (Version 1)
Quarter: 2012Q4

REPORT INFORMATION
  Report Type: Spontaneous
  Country: US (occurrence: None)
  Receive Date: 20121206
  Receipt Date: 20121206
  Transmission Date: 20130627
  Serious: Yes (Other)
  Sender: FDA-Public Use
  Company Number: 100519-000176

PATIENT
  Sex: Female

DRUGS (1)
  1. PRINCIPAL SECRET ADVANCED WITH HYDROSPHERES CONTINUOUS MOISTURE SPF8 [Suspect]
     Dosage: once dermal
     Dates: start: 20100511

REACTIONS (1)
  - Throat tightness [None]
